FAERS Safety Report 5703503-2 (Version None)
Quarter: 2008Q2

REPORT INFORMATION
  Report Type: 
  Country: None (occurrence: None)
  Receive Date: 20080411
  Receipt Date: 20080331
  Transmission Date: 20081010
  Serious: Yes (Other)
  Sender: FDA-Public Use
  Company Number: US-AMGEN-STX272272

PATIENT
  Sex: Female

DRUGS (3)
  1. ENBREL [Suspect]
     Indication: JUVENILE ARTHRITIS
     Route: 058
     Dates: start: 20080101
  2. PLAQUENIL [Concomitant]
     Indication: JUVENILE ARTHRITIS
     Route: 065
     Dates: start: 20060101
  3. METHOTREXATE [Concomitant]
     Indication: JUVENILE ARTHRITIS
     Route: 065
     Dates: start: 20060101

REACTIONS (4)
  - BLINDNESS [None]
  - CHEST DISCOMFORT [None]
  - DYSPNOEA [None]
  - VISION BLURRED [None]
